FAERS Safety Report 17095096 (Version 4)
Quarter: 2021Q3

REPORT INFORMATION
  Report Type: Other
  Country: US (occurrence: US)
  Receive Date: 20191130
  Receipt Date: 20210825
  Transmission Date: 20211014
  Serious: Yes (Other)
  Sender: FDA-Public Use
  Company Number: US-ROCHE-2481386

PATIENT
  Age: 35 Year
  Sex: Female
  Weight: 53.12 kg

DRUGS (4)
  1. OCREVUS [Suspect]
     Active Substance: OCRELIZUMAB
     Indication: RELAPSING-REMITTING MULTIPLE SCLEROSIS
     Route: 042
     Dates: start: 20190221, end: 20200303
  2. OCREVUS [Suspect]
     Active Substance: OCRELIZUMAB
     Indication: RELAPSING MULTIPLE SCLEROSIS
     Route: 065
     Dates: start: 201708
  3. ADDERALL [Concomitant]
     Active Substance: AMPHETAMINE ASPARTATE\AMPHETAMINE SULFATE\DEXTROAMPHETAMINE SACCHARATE\DEXTROAMPHETAMINE SULFATE
     Indication: ANXIETY
  4. COPPER IUD [Concomitant]
     Active Substance: COPPER
     Indication: CONTRACEPTION

REACTIONS (6)
  - Depression [Not Recovered/Not Resolved]
  - Illness [Unknown]
  - Clostridium difficile infection [Recovered/Resolved]
  - Maternal exposure timing unspecified [Unknown]
  - Autoimmune disorder [Unknown]
  - Lichen sclerosus [Unknown]

NARRATIVE: CASE EVENT DATE: 201810
